FAERS Safety Report 4478835-9 (Version None)
Quarter: 2004Q3

REPORT INFORMATION
  Report Type: 
  Country: None (occurrence: None)
  Receive Date: 20040923
  Receipt Date: 20040720
  Transmission Date: 20050211
  Serious: No
  Sender: FDA-Public Use
  Company Number: USA040773198

PATIENT
  Age: 86 Year
  Sex: Female

DRUGS (6)
  1. FORTEO [Suspect]
     Indication: OSTEOPOROSIS
     Dosage: 20 UG DAY
     Dates: start: 20040601
  2. PRILOSEC [Concomitant]
  3. ATACAND [Concomitant]
  4. MULTI-VITAMINS [Concomitant]
  5. CITRACAL (CALCIUM CITRATE) [Concomitant]
  6. ALBUTEROL [Concomitant]

REACTIONS (1)
  - HOT FLUSH [None]
